FAERS Safety Report 8587087-X (Version None)
Quarter: 2012Q3

REPORT INFORMATION
  Report Type: 
  Country: None (occurrence: None)
  Receive Date: 20120810
  Receipt Date: 20120615
  Transmission Date: 20120928
  Serious: No
  Sender: FDA-Public Use
  Company Number: US-009507513-2012SP035880

PATIENT

DRUGS (12)
  1. CRESTOR [Concomitant]
     Indication: PRODUCT USED FOR UNKNOWN INDICATION
     Dosage: 5 MG, QOD
  2. VITAMINS (UNSPECIFIED) [Concomitant]
     Indication: PRODUCT USED FOR UNKNOWN INDICATION
     Dosage: UNK, UNKNOWN
  3. OMEGA-3-ACID ETHYL ESTERS [Concomitant]
     Indication: PRODUCT USED FOR UNKNOWN INDICATION
     Dosage: UNK, UNKNOWN
  4. MIRALAX [Suspect]
     Indication: GASTROINTESTINAL DISORDER THERAPY
     Dosage: UNK UNK, QD
     Route: 048
  5. MIRALAX [Suspect]
     Indication: MEDICAL OBSERVATION
  6. METAMUCIL-2 [Concomitant]
     Indication: CONSTIPATION
     Dosage: 1 TO 2 TSP, QD
  7. MIRALAX [Suspect]
     Indication: CONSTIPATION
  8. VITAMIN B COMPLEX CAP [Concomitant]
     Indication: PRODUCT USED FOR UNKNOWN INDICATION
     Dosage: UNK, UNKNOWN
  9. LOVASTATIN [Concomitant]
     Indication: PRODUCT USED FOR UNKNOWN INDICATION
     Dosage: 20 MG, QOD
  10. UBIDECARENONE [Concomitant]
     Indication: PRODUCT USED FOR UNKNOWN INDICATION
     Dosage: UNK, UNKNOWN
  11. XANTHOPHYLL [Concomitant]
     Indication: PRODUCT USED FOR UNKNOWN INDICATION
     Dosage: UNK, UNKNOWN
  12. MIRALAX [Suspect]
     Indication: ABNORMAL FAECES

REACTIONS (4)
  - INCORRECT DRUG ADMINISTRATION DURATION [None]
  - ERUCTATION [None]
  - CHEST PAIN [None]
  - NO THERAPEUTIC RESPONSE [None]
